FAERS Safety Report 8203107 (Version 5)
Quarter: 2013Q1

REPORT INFORMATION
  Report Type: Spontaneous
  Country: US (occurrence: US)
  Receive Date: 20111027
  Receipt Date: 20130225
  Transmission Date: 20140127
  Serious: Yes (Other)
  Sender: FDA-Public Use
  Company Number: US-ASTRAZENECA-2011SE10249

PATIENT
  Age: 54 Year
  Sex: Female

DRUGS (10)
  1. PULMICORT FLEXHALER [Suspect]
     Route: 055
  2. RHINOCORT AQUA NASAL SPRAY [Suspect]
     Route: 045
  3. NEXIUM [Suspect]
     Indication: GASTROOESOPHAGEAL REFLUX DISEASE
     Route: 048
  4. NEXIUM [Suspect]
     Indication: GASTROOESOPHAGEAL REFLUX DISEASE
     Route: 048
  5. TOPROL XL [Suspect]
     Route: 048
  6. PRILOSEC [Suspect]
     Route: 048
  7. CRESTOR [Suspect]
     Route: 048
  8. ZOMIG [Suspect]
     Route: 048
  9. ZOMIG [Suspect]
     Route: 048
  10. LUPUS MEDICATIONS [Concomitant]

REACTIONS (19)
  - Haemorrhagic diathesis [Unknown]
  - Gastrooesophageal reflux disease [Unknown]
  - Systemic lupus erythematosus [Unknown]
  - Haemorrhage [Unknown]
  - Sinusitis [Unknown]
  - Sinus disorder [Unknown]
  - Adverse drug reaction [Unknown]
  - Drug hypersensitivity [Unknown]
  - Migraine [Unknown]
  - Dyspnoea [Unknown]
  - Malaise [Unknown]
  - Vomiting [Unknown]
  - Headache [Unknown]
  - Mood altered [Unknown]
  - Increased tendency to bruise [Unknown]
  - Mood swings [Unknown]
  - Abdominal discomfort [Unknown]
  - Intentional drug misuse [Unknown]
  - Drug ineffective [Unknown]
